FAERS Safety Report 9093067 (Version 1)
Quarter: 2013Q1

REPORT INFORMATION
  Report Type: Spontaneous
  Country: US (occurrence: None)
  Receive Date: 20130213
  Receipt Date: 20130213
  Transmission Date: 20140127
  Serious: No
  Sender: FDA-Public Use
  Company Number: None

PATIENT
  Age: 45 Year
  Sex: Female

DRUGS (1)
  1. SIMPONI [Suspect]
     Indication: PSORIATIC ARTHROPATHY
     Dates: start: 20130117

REACTIONS (1)
  - Fatigue [None]
